FAERS Safety Report 4324017-0 (Version None)
Quarter: 2004Q1

REPORT INFORMATION
  Report Type: 
  Country: None (occurrence: None)
  Receive Date: 20040323
  Receipt Date: 20040310
  Transmission Date: 20041129
  Serious: Yes (Hospitalization)
  Sender: FDA-Public Use
  Company Number: 194008

PATIENT
  Age: 63 Year
  Sex: Male
  Weight: 74.3899 kg

DRUGS (4)
  1. AVONEX [Suspect]
     Indication: MULTIPLE SCLEROSIS
     Dosage: 30 MCG QW IM
     Route: 030
     Dates: start: 20031001
  2. LORAZEPAM [Concomitant]
  3. LOTENSIN [Concomitant]
  4. CARDURA [Concomitant]

REACTIONS (2)
  - DIPLEGIA [None]
  - INFLUENZA LIKE ILLNESS [None]
